FAERS Safety Report 15391091 (Version 1)
Quarter: 2018Q3

REPORT INFORMATION
  Report Type: Spontaneous
  Country: US (occurrence: US)
  Receive Date: 20180917
  Receipt Date: 20180917
  Transmission Date: 20181010
  Serious: Yes (Other)
  Sender: FDA-Public Use
  Company Number: US-COOPERSURGICAL, INC.-US-2018CPS033048

PATIENT

DRUGS (1)
  1. PARAGARD T 380A [Suspect]
     Active Substance: COPPER
     Indication: CONTRACEPTION
     Dosage: UNK
     Route: 015
     Dates: start: 201104, end: 20151123

REACTIONS (18)
  - Uterine injury [Recovered/Resolved]
  - Hysterectomy [Recovered/Resolved]
  - Device dislocation [Recovered/Resolved]
  - Anxiety [Not Recovered/Not Resolved]
  - Embedded device [Recovered/Resolved]
  - Anhedonia [Not Recovered/Not Resolved]
  - Dyspepsia [Not Recovered/Not Resolved]
  - Pain [Not Recovered/Not Resolved]
  - Scar [Unknown]
  - Constipation [Not Recovered/Not Resolved]
  - Reproductive complication associated with device [Not Recovered/Not Resolved]
  - Nausea [Not Recovered/Not Resolved]
  - Salpingectomy [Recovered/Resolved]
  - Stress [Not Recovered/Not Resolved]
  - Device difficult to use [Recovered/Resolved]
  - Colectomy [Recovered/Resolved]
  - Emotional distress [Not Recovered/Not Resolved]
  - Food aversion [Not Recovered/Not Resolved]

NARRATIVE: CASE EVENT DATE: 2015
